FAERS Safety Report 13377747 (Version 2)
Quarter: 2017Q2

REPORT INFORMATION
  Report Type: Report from Study
  Country: CA (occurrence: CA)
  Receive Date: 20170328
  Receipt Date: 20170404
  Transmission Date: 20170830
  Serious: Yes (Hospitalization, Other)
  Sender: FDA-Public Use
  Company Number: CA-PFIZER INC-CA-WYE-H09731509

PATIENT
  Sex: Male

DRUGS (1)
  1. VENLAFAXINE HCL [Suspect]
     Active Substance: VENLAFAXINE HYDROCHLORIDE
     Indication: ANTIDEPRESSANT THERAPY
     Dosage: 37.5 MG, 1X/DAY
     Route: 064

REACTIONS (4)
  - Maternal exposure during pregnancy [Recovered/Resolved]
  - Drug withdrawal syndrome neonatal [Recovered/Resolved]
  - Neonatal tachypnoea [Recovered/Resolved]
  - Neonatal respiratory distress syndrome [Recovered/Resolved]
